FAERS Safety Report 11274530 (Version 1)
Quarter: 2015Q3

REPORT INFORMATION
  Report Type: Spontaneous
  Country: CH (occurrence: IN)
  Receive Date: 20150715
  Receipt Date: 20150715
  Transmission Date: 20151125
  Serious: Yes (Other)
  Sender: FDA-Public Use
  Company Number: CH-LPDUSPRD-20150547

PATIENT
  Age: 18 Year
  Sex: Female

DRUGS (1)
  1. FERINJECT [Suspect]
     Active Substance: FERRIC CARBOXYMALTOSE
     Dosage: 500 MG
     Route: 041
     Dates: start: 20150701

REACTIONS (5)
  - Swelling face [Unknown]
  - Eye swelling [Unknown]
  - Rash generalised [Unknown]
  - Rash [Unknown]
  - Generalised oedema [Unknown]

NARRATIVE: CASE EVENT DATE: 20150701
